FAERS Safety Report 4822238-1 (Version None)
Quarter: 2005Q4

REPORT INFORMATION
  Report Type: 
  Country: None (occurrence: None)
  Receive Date: 20051103
  Receipt Date: 20051031
  Transmission Date: 20060501
  Serious: Yes (Death)
  Sender: FDA-Public Use
  Company Number: USA-2005-0021645

PATIENT
  Age: 59 Year
  Sex: Male

DRUGS (4)
  1. OXYCONTIN [Suspect]
     Indication: PAIN
     Dosage: SEE IMAGE
     Dates: start: 20000608
  2. OXYCONTIN [Suspect]
     Indication: PAIN
     Dosage: SEE IMAGE
     Dates: start: 20050606
  3. OXYCODONE HCL [Suspect]
     Indication: PAIN
     Dosage: 5 MG, PRN,
  4. ACTIQ [Suspect]
     Dosage: 400 MCG,

REACTIONS (7)
  - LUNG NEOPLASM MALIGNANT [None]
  - MALIGNANT NEOPLASM PROGRESSION [None]
  - METASTASES TO BONE [None]
  - METASTASES TO LIVER [None]
  - METASTASES TO MUSCLE [None]
  - POST LAMINECTOMY SYNDROME [None]
  - RADICULAR PAIN [None]
